FAERS Safety Report 16644903 (Version 1)
Quarter: 2019Q3

REPORT INFORMATION
  Report Type: Spontaneous
  Country: US (occurrence: US)
  Receive Date: 20190729
  Receipt Date: 20190729
  Transmission Date: 20191004
  Serious: No
  Sender: FDA-Public Use
  Company Number: US-SA-2019SA201927

PATIENT
  Age: 21 Year
  Sex: Male
  Weight: 72.56 kg

DRUGS (10)
  1. ACETAMINOPHEN. [Concomitant]
     Active Substance: ACETAMINOPHEN
     Indication: PREMEDICATION
     Dosage: 325 MG PTI
     Route: 065
     Dates: start: 20190626
  2. SODIUM CHLORIDE 0.9% [Concomitant]
     Active Substance: SODIUM CHLORIDE
     Dosage: 0.9 % FLUSH
     Route: 065
     Dates: start: 20190626
  3. LISINOPRIL. [Concomitant]
     Active Substance: LISINOPRIL
     Dosage: 20 MG, QD
     Route: 065
     Dates: start: 20190625
  4. HEPARIN [Concomitant]
     Active Substance: HEPARIN SODIUM
     Dosage: 100 UN FLUSH
     Route: 065
     Dates: start: 20190626
  5. ALDURAZYME [Suspect]
     Active Substance: LARONIDASE
     Indication: MUCOPOLYSACCHARIDOSIS
     Dosage: 0.57 MG/KG, QW (43.5 MG WEEKLY)
     Route: 065
     Dates: start: 20190625
  6. EPINEPHRINE. [Concomitant]
     Active Substance: EPINEPHRINE
     Dosage: 0.3 MG PRN ANA
     Route: 065
     Dates: start: 20190626
  7. CETRIZINE [Concomitant]
     Active Substance: CETIRIZINE HYDROCHLORIDE
     Indication: PREMEDICATION
     Dosage: 10 MG PTI
     Route: 065
     Dates: start: 20190626
  8. ZYRTEC [Concomitant]
     Active Substance: CETIRIZINE HYDROCHLORIDE
     Indication: PREMEDICATION
     Dosage: 10 MG PTI
     Route: 065
     Dates: start: 20190625
  9. NORMAL SALINE [Concomitant]
     Active Substance: SODIUM CHLORIDE
     Dosage: 0.9% DILUENT
     Route: 065
     Dates: start: 20190626
  10. ASPIRIN [ACETYLSALICYLIC ACID] [Concomitant]
     Active Substance: ASPIRIN
     Dosage: 81 MG, QD
     Route: 065
     Dates: start: 20190625

REACTIONS (1)
  - Device occlusion [Unknown]

NARRATIVE: CASE EVENT DATE: 20190721
